FAERS Safety Report 4389046-X (Version None)
Quarter: 2004Q2

REPORT INFORMATION
  Report Type: 
  Country: None (occurrence: None)
  Receive Date: 20040628
  Receipt Date: 20040615
  Transmission Date: 20050107
  Serious: Yes (Other)
  Sender: FDA-Public Use
  Company Number: 2004219676GB

PATIENT
  Age: 58 Year
  Sex: Male

DRUGS (2)
  1. CELEBREX [Suspect]
     Indication: RHEUMATOID ARTHRITIS
     Dosage: 200 MG, BID, ORAL
     Route: 048
     Dates: start: 20040502
  2. BETAHISTINE(BETAHISTINE) [Suspect]
     Indication: TINNITUS
     Dosage: 16 MG, TID, ORAL
     Route: 048
     Dates: start: 19990101

REACTIONS (3)
  - CONDITION AGGRAVATED [None]
  - DRUG INTERACTION [None]
  - TINNITUS [None]
